FAERS Safety Report 5502957-4 (Version None)
Quarter: 2007Q4

REPORT INFORMATION
  Report Type: 
  Country: None (occurrence: None)
  Receive Date: 20071031
  Receipt Date: 20071022
  Transmission Date: 20080405
  Serious: Yes (Disabling)
  Sender: FDA-Public Use
  Company Number: B0493164A

PATIENT
  Age: 23 Day
  Sex: Female
  Weight: 0.8 kg

DRUGS (4)
  1. FORTUM [Suspect]
     Indication: INFECTION
     Dosage: 25MG THREE TIMES PER DAY
     Route: 042
     Dates: start: 20070701, end: 20070701
  2. TRIFLUCAN [Suspect]
     Indication: INFECTION
     Dosage: 2.8MG PER DAY
     Route: 042
     Dates: start: 20070701, end: 20070701
  3. VANCOMYCIN [Suspect]
     Indication: INFECTION
     Dosage: 11MG PER DAY
     Route: 042
     Dates: start: 20070701, end: 20070703
  4. MORPHINE [Suspect]
     Indication: PAIN
     Dosage: 10MCK SEE DOSAGE TEXT
     Route: 042
     Dates: start: 20070701, end: 20070703

REACTIONS (1)
  - MYOCLONUS [None]
